FAERS Safety Report 14418512 (Version 1)
Quarter: 2018Q1

REPORT INFORMATION
  Report Type: Spontaneous
  Country: US (occurrence: US)
  Receive Date: 20180119
  Receipt Date: 20180119
  Transmission Date: 20180509
  Serious: Yes (Disabling, Other)
  Sender: FDA-Public Use
  Company Number: None

PATIENT
  Sex: Female
  Weight: 65.25 kg

DRUGS (3)
  1. FENTANYL CITRATE INJECTION [Suspect]
     Active Substance: FENTANYL CITRATE
     Indication: PAIN
     Dosage: ?          QUANTITY:100 MCG;?
     Route: 042
     Dates: start: 20171130, end: 20171130
  2. FENTANYL CITRATE INJECTION [Suspect]
     Active Substance: FENTANYL CITRATE
     Indication: COLONOSCOPY
     Dosage: ?          QUANTITY:100 MCG;?
     Route: 042
     Dates: start: 20171130, end: 20171130
  3. HYDROCORTIZONE [Concomitant]
     Active Substance: HYDROCORTISONE

REACTIONS (11)
  - Paraesthesia [None]
  - Impaired work ability [None]
  - Hypoaesthesia [None]
  - Loss of personal independence in daily activities [None]
  - Dizziness [None]
  - Asthenia [None]
  - Adrenal gland injury [None]
  - Fatigue [None]
  - Impaired driving ability [None]
  - Vision blurred [None]
  - Nausea [None]

NARRATIVE: CASE EVENT DATE: 20171130
